FAERS Safety Report 10920792 (Version 1)
Quarter: 2015Q1

REPORT INFORMATION
  Report Type: Spontaneous
  Country: US (occurrence: None)
  Receive Date: 20150313
  Receipt Date: 20150313
  Transmission Date: 20150721
  Serious: Yes (Disabling, Other)
  Sender: FDA-Public Use
  Company Number: None

PATIENT
  Age: 30 Year
  Sex: Female
  Weight: 39.92 kg

DRUGS (3)
  1. LEVOFLOXACIN 500 MG ZYDUS [Suspect]
     Active Substance: LEVOFLOXACIN
     Indication: PNEUMONIA
     Dosage: 1 500 MG PILL FOR 10 DAYS
     Route: 048
  2. AMPHETAMINE [Concomitant]
     Active Substance: AMPHETAMINE
  3. DEXTROAMPHETAMINE [Concomitant]
     Active Substance: DEXTROAMPHETAMINE

REACTIONS (12)
  - Dehydration [None]
  - Vomiting [None]
  - Pain [None]
  - Hypersomnia [None]
  - Arthralgia [None]
  - Weight decreased [None]
  - Hypoaesthesia [None]
  - Peripheral swelling [None]
  - Rash [None]
  - Skin discolouration [None]
  - Vein collapse [None]
  - Cough [None]

NARRATIVE: CASE EVENT DATE: 20140220
